FAERS Safety Report 6259370-4 (Version None)
Quarter: 2009Q3

REPORT INFORMATION
  Report Type: 
  Country: None (occurrence: None)
  Receive Date: 20090702
  Receipt Date: 20090626
  Transmission Date: 20100115
  Serious: Yes (Other)
  Sender: FDA-Public Use
  Company Number: CHPA2009US14275

PATIENT
  Age: 60 Year
  Sex: Male

DRUGS (1)
  1. DESENEX [Suspect]
     Indication: HYPERHIDROSIS
     Dosage: QD, TOPICAL
     Route: 061

REACTIONS (4)
  - HYPERCHOLESTEROLAEMIA [None]
  - HYPERTENSION [None]
  - INTENTIONAL DRUG MISUSE [None]
  - OFF LABEL USE [None]
